FAERS Safety Report 23128144 (Version 1)
Quarter: 2023Q4

REPORT INFORMATION
  Report Type: Spontaneous
  Country: IR (occurrence: IR)
  Receive Date: 20231031
  Receipt Date: 20231031
  Transmission Date: 20240110
  Serious: Yes (Death, Hospitalization, Other)
  Sender: FDA-Public Use
  Company Number: IR-MPL-000022

PATIENT
  Age: 32 Year
  Sex: Female

DRUGS (1)
  1. METHOCARBAMOL [Suspect]
     Active Substance: METHOCARBAMOL
     Indication: Musculoskeletal pain
     Route: 030

REACTIONS (6)
  - Embolia cutis medicamentosa [Fatal]
  - Cardiogenic shock [Fatal]
  - Haemodynamic instability [Fatal]
  - Hypotension [Fatal]
  - Tachycardia [Fatal]
  - Acute kidney injury [Fatal]
